FAERS Safety Report 15044076 (Version 1)
Quarter: 2018Q2

REPORT INFORMATION
  Report Type: Spontaneous
  Country: JP (occurrence: JP)
  Receive Date: 20180621
  Receipt Date: 20180621
  Transmission Date: 20180711
  Serious: Yes (Death)
  Sender: FDA-Public Use
  Company Number: JP-NAPPMUNDI-GBR-2018-0056307

PATIENT
  Age: 94 Year
  Sex: Male

DRUGS (2)
  1. NORSPAN [Suspect]
     Active Substance: BUPRENORPHINE
     Indication: BACK PAIN
     Dosage: 15 MCG, Q1H (STRENGTH 5MCG/H)
     Route: 062
     Dates: end: 20180522
  2. NORSPAN [Suspect]
     Active Substance: BUPRENORPHINE
     Dosage: 5 MCG, Q1H (STRENGTH 5MG/H)
     Route: 062
     Dates: start: 20171123

REACTIONS (4)
  - Lung neoplasm malignant [Fatal]
  - Wrong technique in product usage process [Unknown]
  - Pain [Unknown]
  - Inadequate analgesia [Unknown]
